FAERS Safety Report 9232803 (Version 4)
Quarter: 2014Q1

REPORT INFORMATION
  Report Type: Spontaneous
  Country: JP (occurrence: JP)
  Receive Date: 20130416
  Receipt Date: 20140123
  Transmission Date: 20141002
  Serious: Yes (Other)
  Sender: FDA-Public Use
  Company Number: JP-AMGEN-JPNSP2013025446

PATIENT
  Age: 58 Year
  Sex: Female
  Weight: 55 kg

DRUGS (13)
  1. RANMARK [Suspect]
     Indication: BONE LESION
     Dosage: 120 MG, UNK
     Route: 058
     Dates: start: 20120507
  2. SEROTONE [Concomitant]
     Indication: BREAST CANCER
     Route: 042
     Dates: start: 20120507
  3. DECADRON                           /00016001/ [Concomitant]
     Indication: BREAST CANCER
     Route: 042
     Dates: start: 20110725
  4. PROEMEND [Concomitant]
     Indication: BREAST CANCER
     Route: 042
     Dates: start: 20120507
  5. FARMORUBICIN [Concomitant]
     Indication: BREAST CANCER
     Route: 042
     Dates: start: 20130311
  6. ENDOXAN                            /00021101/ [Concomitant]
     Indication: BREAST CANCER
     Route: 042
     Dates: start: 20130311
  7. FASLODEX                           /01285001/ [Concomitant]
     Indication: BREAST CANCER
     Route: 030
     Dates: start: 20121203
  8. MOBIC [Concomitant]
     Indication: METASTASES TO BONE
     Route: 048
     Dates: start: 20110624
  9. PROTECADIN [Concomitant]
     Indication: METASTASES TO BONE
     Route: 048
     Dates: start: 20110527
  10. GASLON N [Concomitant]
     Indication: METASTASES TO BONE
     Route: 048
     Dates: start: 20110907
  11. CALCIUM LACTATE [Concomitant]
     Indication: METASTASES TO BONE
     Route: 048
     Dates: start: 20120907
  12. OXYCONTIN [Concomitant]
     Indication: METASTASES TO BONE
     Route: 048
     Dates: start: 20120426
  13. DECADRON                           /00016002/ [Concomitant]
     Indication: BREAST CANCER
     Route: 042
     Dates: start: 20110725

REACTIONS (1)
  - Osteonecrosis of jaw [Not Recovered/Not Resolved]
